FAERS Safety Report 7978631-1 (Version None)
Quarter: 2011Q4

REPORT INFORMATION
  Report Type: 
  Country: None (occurrence: None)
  Receive Date: 20111214
  Receipt Date: 20111208
  Transmission Date: 20120403
  Serious: Yes (Death, Other)
  Sender: FDA-Public Use
  Company Number: JP-GENZYME-FLUD-1000609

PATIENT
  Sex: Female
  Weight: 65 kg

DRUGS (13)
  1. BUSULFAN [Suspect]
     Indication: ACUTE MYELOID LEUKAEMIA
  2. TACROLIMUS [Concomitant]
     Indication: PROPHYLAXIS AGAINST GRAFT VERSUS HOST DISEASE
     Dosage: UNK
     Route: 065
     Dates: start: 20100108, end: 20100228
  3. FLUDARA [Suspect]
     Indication: STEM CELL TRANSPLANT
     Dosage: UNK
     Route: 065
     Dates: start: 20091225, end: 20100102
  4. GANCICLOVIR [Concomitant]
     Indication: INFECTION PROPHYLAXIS
     Dosage: UNK
     Route: 065
     Dates: start: 20100219, end: 20100222
  5. FLUDARA [Suspect]
     Indication: ACUTE MYELOID LEUKAEMIA
  6. THYMOGLOBULIN [Suspect]
     Indication: STEM CELL TRANSPLANT
     Dosage: 115 MG, ONCE
     Route: 042
     Dates: start: 20091228, end: 20091229
  7. VORICONAZOLE [Concomitant]
     Indication: ANTIFUNGAL PROPHYLAXIS
     Dosage: UNK
     Route: 065
     Dates: start: 20091225, end: 20100122
  8. THYMOGLOBULIN [Suspect]
     Indication: ACUTE MYELOID LEUKAEMIA
  9. SULFAMETHOXAZOLE W [Concomitant]
     Indication: INFECTION PROPHYLAXIS
     Dosage: UNK
     Route: 065
     Dates: start: 20091225, end: 20100104
  10. MICAFUNGIN SODIUM [Concomitant]
     Indication: ANTIFUNGAL PROPHYLAXIS
     Dosage: UNK
     Route: 065
     Dates: start: 20100109, end: 20100202
  11. CHLORPHENIRAMINE MALEATE [Concomitant]
     Indication: PREMEDICATION
     Dosage: UNK
     Route: 065
     Dates: start: 20091225, end: 20100225
  12. BUSULFAN [Suspect]
     Indication: STEM CELL TRANSPLANT
     Dosage: UNK
     Route: 065
     Dates: start: 20091230, end: 20100103
  13. ACYCLOVIR [Concomitant]
     Indication: INFECTION PROPHYLAXIS
     Dosage: UNK
     Route: 065
     Dates: start: 20091225, end: 20100115

REACTIONS (5)
  - PULMONARY MYCOSIS [None]
  - RENAL HAEMATOMA [None]
  - DISSEMINATED INTRAVASCULAR COAGULATION [None]
  - CYTOMEGALOVIRUS ENTEROCOLITIS [None]
  - ACUTE GRAFT VERSUS HOST DISEASE IN INTESTINE [None]
